FAERS Safety Report 18191287 (Version 3)
Quarter: 2021Q1

REPORT INFORMATION
  Report Type: Report from Study
  Country: JP (occurrence: JP)
  Receive Date: 20200825
  Receipt Date: 20210226
  Transmission Date: 20210419
  Serious: Yes (Other)
  Sender: FDA-Public Use
  Company Number: JP-ASTRAZENECA-2020SF05332

PATIENT
  Age: 66 Year
  Sex: Female

DRUGS (2)
  1. TAGRISSO [Suspect]
     Active Substance: OSIMERTINIB
     Indication: NON-SMALL CELL LUNG CANCER
     Route: 048
     Dates: start: 20181210
  2. TAGRISSO [Suspect]
     Active Substance: OSIMERTINIB
     Indication: NON-SMALL CELL LUNG CANCER
     Route: 048
     Dates: start: 20181001, end: 20181017

REACTIONS (8)
  - Facial paralysis [Unknown]
  - Platelet count decreased [Unknown]
  - Electrocardiogram QT prolonged [Unknown]
  - White blood cell count decreased [Unknown]
  - Hepatic function abnormal [Unknown]
  - Anaemia [Unknown]
  - Paronychia [Unknown]
  - Alopecia [Unknown]

NARRATIVE: CASE EVENT DATE: 20181016
